FAERS Safety Report 9264016 (Version 3)
Quarter: 2014Q4

REPORT INFORMATION
  Report Type: Spontaneous
  Country: US (occurrence: US)
  Receive Date: 20130430
  Receipt Date: 20141014
  Transmission Date: 20150529
  Serious: Yes (Hospitalization, Other)
  Sender: FDA-Public Use
  Company Number: US-009507513-1304USA015629

PATIENT
  Sex: Female

DRUGS (1)
  1. NUVARING [Suspect]
     Active Substance: ETHINYL ESTRADIOL\ETONOGESTREL
     Indication: PRODUCT USED FOR UNKNOWN INDICATION
     Dosage: UNK
     Route: 067
     Dates: start: 2007, end: 20110317

REACTIONS (25)
  - Glucose tolerance impaired [Unknown]
  - Cardiac failure congestive [Recovering/Resolving]
  - Acute pulmonary oedema [Recovering/Resolving]
  - Hyponatraemia [Unknown]
  - Infectious pleural effusion [Unknown]
  - Iron deficiency [Unknown]
  - Anxiety disorder [Unknown]
  - Coagulopathy [Unknown]
  - Acute respiratory failure [Recovering/Resolving]
  - Cardiac ablation [Unknown]
  - Bronchitis [Unknown]
  - Mental status changes [Unknown]
  - Cardiomyopathy [Unknown]
  - Hepatic function abnormal [Unknown]
  - Jugular vein thrombosis [Unknown]
  - Vena cava thrombosis [Unknown]
  - Acute kidney injury [Unknown]
  - Cardiogenic shock [Unknown]
  - Pneumonia [Recovering/Resolving]
  - Supraventricular tachycardia [Recovered/Resolved]
  - Encephalopathy [Unknown]
  - Pulmonary embolism [Unknown]
  - Hyperkalaemia [Unknown]
  - Back pain [Unknown]
  - Borderline personality disorder [Unknown]

NARRATIVE: CASE EVENT DATE: 201103
